FAERS Safety Report 4896755-2 (Version None)
Quarter: 2005Q4

REPORT INFORMATION
  Report Type: 
  Country: None (occurrence: None)
  Receive Date: 20051223
  Receipt Date: 20050422
  Transmission Date: 20060501
  Serious: Yes (Other)
  Sender: FDA-Public Use
  Company Number: CHPA2005US01193

PATIENT

DRUGS (1)
  1. TRANSDERM SCOP [Suspect]

REACTIONS (1)
  - DRUG WITHDRAWAL SYNDROME [None]
